FAERS Safety Report 13911074 (Version 1)
Quarter: 2017Q3

REPORT INFORMATION
  Report Type: Spontaneous
  Country: US (occurrence: US)
  Receive Date: 20170827
  Receipt Date: 20170827
  Transmission Date: 20171127
  Serious: Yes (Life-Threatening, Hospitalization)
  Sender: FDA-Public Use
  Company Number: None

PATIENT
  Age: 59 Year
  Sex: Male
  Weight: 87.3 kg

DRUGS (1)
  1. CRESTOR [Suspect]
     Active Substance: ROSUVASTATIN CALCIUM
     Indication: BLOOD CHOLESTEROL ABNORMAL
     Dates: start: 20111012, end: 20111228

REACTIONS (5)
  - Liver disorder [None]
  - Hepatic enzyme increased [None]
  - Abdominal pain [None]
  - Diabetes mellitus [None]
  - Pancreatic disorder [None]

NARRATIVE: CASE EVENT DATE: 20111229
